FAERS Safety Report 11759990 (Version 1)
Quarter: 2015Q4

REPORT INFORMATION
  Report Type: Spontaneous
  Country: US (occurrence: US)
  Receive Date: 20151120
  Receipt Date: 20151120
  Transmission Date: 20160304
  Serious: No
  Sender: FDA-Public Use
  Company Number: US-ELI_LILLY_AND_COMPANY-US201210009410

PATIENT
  Age: 78 Year
  Sex: Female

DRUGS (1)
  1. FORTEO [Suspect]
     Active Substance: TERIPARATIDE
     Indication: OSTEOPOROSIS
     Dosage: 20 UG, QD
     Route: 065
     Dates: start: 20120905, end: 201210

REACTIONS (6)
  - Rash macular [Unknown]
  - Retching [Unknown]
  - Insomnia [Unknown]
  - Anger [Unknown]
  - Fear [Unknown]
  - Intentional product misuse [Unknown]
